FAERS Safety Report 21981854 (Version 2)
Quarter: 2023Q1

REPORT INFORMATION
  Report Type: Report from Study
  Country: GB (occurrence: GB)
  Receive Date: 20230212
  Receipt Date: 20230316
  Transmission Date: 20230418
  Serious: No
  Sender: FDA-Public Use
  Company Number: GB-ABBVIE-4304356

PATIENT
  Age: 70 Year
  Sex: Female

DRUGS (1)
  1. VENETOCLAX [Suspect]
     Active Substance: VENETOCLAX
     Indication: Product used for unknown indication
     Route: 048

REACTIONS (3)
  - Contusion [Unknown]
  - Dehydration [Unknown]
  - Vein disorder [Unknown]

NARRATIVE: CASE EVENT DATE: 20230208
